FAERS Safety Report 11842256 (Version 1)
Quarter: 2015Q4

REPORT INFORMATION
  Report Type: Spontaneous
  Country: US (occurrence: US)
  Receive Date: 20151216
  Receipt Date: 20151216
  Transmission Date: 20160305
  Serious: No
  Sender: FDA-Public Use
  Company Number: US-RB-074824-15

PATIENT
  Age: 75 Year
  Sex: Male

DRUGS (2)
  1. DELSYM [Suspect]
     Active Substance: DEXTROMETHORPHAN
     Indication: COUGH
     Dosage: 10ML. ,FREQUENCY UNK
     Route: 065
     Dates: start: 20150314
  2. DELSYM [Suspect]
     Active Substance: DEXTROMETHORPHAN
     Dosage: 5ML. DATE WAS LAST USED ON 15-MAR-2015 AT 12:30AM,FREQUENCY UNK
     Route: 065
     Dates: start: 20150315

REACTIONS (3)
  - Inappropriate schedule of drug administration [Unknown]
  - Expired product administered [Unknown]
  - Drug ineffective [Not Recovered/Not Resolved]

NARRATIVE: CASE EVENT DATE: 20150314
